FAERS Safety Report 24771293 (Version 2)
Quarter: 2024Q4

REPORT INFORMATION
  Report Type: Spontaneous
  Country: US (occurrence: US)
  Receive Date: 20241224
  Receipt Date: 20241231
  Transmission Date: 20250115
  Serious: Yes (Life-Threatening, Hospitalization)
  Sender: PFIZER
  Company Number: US-MLMSERVICE-20241211-PI294727-00175-1

PATIENT
  Age: 75 Year

DRUGS (3)
  1. HEPARIN [Suspect]
     Active Substance: HEPARIN SODIUM
     Indication: Anticoagulant therapy
     Dosage: MONITORED WITH A GOAL PARTIAL THROMBOPLASTIN TIME OF 45 TO 55 SECONDS
  2. TICAGRELOR [Suspect]
     Active Substance: TICAGRELOR
     Indication: Antiplatelet therapy
     Dosage: UNK
  3. ASPIRIN [Suspect]
     Active Substance: ASPIRIN
     Indication: Antiplatelet therapy
     Dosage: UNK

REACTIONS (5)
  - Mouth haemorrhage [Unknown]
  - Melaena [Unknown]
  - Anaemia [Unknown]
  - Multiple organ dysfunction syndrome [Unknown]
  - Shock haemorrhagic [Unknown]
